FAERS Safety Report 12134754 (Version 1)
Quarter: 2016Q1

REPORT INFORMATION
  Report Type: Spontaneous
  Country: CN (occurrence: CN)
  Receive Date: 20160301
  Receipt Date: 20160301
  Transmission Date: 20160526
  Serious: Yes (Life-Threatening, Other)
  Sender: FDA-Public Use
  Company Number: CN-ASTRAZENECA-2016SE21549

PATIENT
  Age: 23972 Day
  Sex: Male
  Weight: 70 kg

DRUGS (2)
  1. TICAGRELOR [Suspect]
     Active Substance: TICAGRELOR
     Indication: EVIDENCE BASED TREATMENT
     Route: 048
     Dates: start: 20140704, end: 20141208
  2. ASPIRIN. [Suspect]
     Active Substance: ASPIRIN
     Route: 048
     Dates: end: 20141208

REACTIONS (4)
  - Haematemesis [Recovered/Resolved]
  - Haemoglobin decreased [Recovering/Resolving]
  - Tachycardia [Unknown]
  - Blood pressure decreased [Recovering/Resolving]

NARRATIVE: CASE EVENT DATE: 20141208
